FAERS Safety Report 6639110-7 (Version None)
Quarter: 2010Q1

REPORT INFORMATION
  Report Type: 
  Country: None (occurrence: None)
  Receive Date: 20100317
  Receipt Date: 20100309
  Transmission Date: 20100710
  Serious: Yes (Hospitalization)
  Sender: FDA-Public Use
  Company Number: US-AMGEN-QUU398186

PATIENT
  Sex: Female

DRUGS (2)
  1. NEUPOGEN [Suspect]
     Indication: CHEMOTHERAPY
     Dates: start: 20100302
  2. CYTOXAN [Concomitant]

REACTIONS (3)
  - BODY TEMPERATURE INCREASED [None]
  - ELECTROLYTE IMBALANCE [None]
  - TRANSFUSION [None]
